FAERS Safety Report 9123601 (Version 1)
Quarter: 2013Q1

REPORT INFORMATION
  Report Type: Report from Study
  Country: NL (occurrence: NL)
  Receive Date: 20130227
  Receipt Date: 20130227
  Transmission Date: 20140127
  Serious: Yes (Hospitalization)
  Sender: FDA-Public Use
  Company Number: NL-ROCHE-1065553

PATIENT
  Age: 75 Year
  Sex: Female

DRUGS (4)
  1. BEVACIZUMAB [Suspect]
     Indication: COLORECTAL CANCER
     Dosage: LAST CYCLE WAS RECEIVED ON 31/JAN/2012 PRIOR TO SAE
     Route: 042
     Dates: start: 20111018
  2. CAPECITABINE [Suspect]
     Indication: COLORECTAL CANCER
     Dosage: LAST CYCLE OF CAPACITABINE WAS RECEIVED ON 31/JAN/2012 PRIOR TO SAE
     Route: 048
     Dates: start: 20111018
  3. OXALIPLATIN [Suspect]
     Indication: COLORECTAL CANCER
     Dosage: LAST CYCLE OF CAPACITABINE WAS RECEIVED ON 31/JAN/2012 PRIOR TO SAE
     Route: 042
     Dates: start: 20121010
  4. ZINACEF [Concomitant]
     Route: 065

REACTIONS (5)
  - Cognitive disorder [Not Recovered/Not Resolved]
  - Abdominal pain [Unknown]
  - Pyrexia [Recovering/Resolving]
  - Nausea [Recovering/Resolving]
  - Vomiting [Recovering/Resolving]
